FAERS Safety Report 9644334 (Version 3)
Quarter: 2013Q4

REPORT INFORMATION
  Report Type: Spontaneous
  Country: US (occurrence: US)
  Receive Date: 20131025
  Receipt Date: 20131216
  Transmission Date: 20140711
  Serious: Yes (Hospitalization)
  Sender: FDA-Public Use
  Company Number: US-BIOGENIDEC-2013BI101639

PATIENT
  Age: 44 Year
  Sex: Female

DRUGS (1)
  1. TYSABRI [Suspect]
     Indication: MULTIPLE SCLEROSIS
     Route: 042
     Dates: start: 20130627, end: 20130731

REACTIONS (8)
  - Aortic valve incompetence [Recovered/Resolved with Sequelae]
  - Post procedural complication [Recovered/Resolved]
  - Jugular vein thrombosis [Not Recovered/Not Resolved]
  - Thrombocytopenia [Unknown]
  - Transfusion [Recovered/Resolved]
  - Heparin-induced thrombocytopenia [Not Recovered/Not Resolved]
  - Tremor [Not Recovered/Not Resolved]
  - Hot flush [Not Recovered/Not Resolved]
